FAERS Safety Report 14211395 (Version 1)
Quarter: 2017Q4

REPORT INFORMATION
  Report Type: Spontaneous
  Country: ZA (occurrence: ZA)
  Receive Date: 20171121
  Receipt Date: 20171121
  Transmission Date: 20180321
  Serious: Yes (Other)
  Sender: FDA-Public Use
  Company Number: PHHY2017ZA169801

PATIENT
  Sex: Female

DRUGS (1)
  1. ESTRADOT [Suspect]
     Active Substance: ESTRADIOL
     Indication: HORMONE LEVEL ABNORMAL
     Dosage: 75 UG, QD
     Route: 048

REACTIONS (1)
  - Bronchitis [Unknown]
